FAERS Safety Report 11992427 (Version 1)
Quarter: 2016Q1

REPORT INFORMATION
  Report Type: Spontaneous
  Country: US (occurrence: None)
  Receive Date: 20160202
  Receipt Date: 20160202
  Transmission Date: 20160526
  Serious: Yes (Other)
  Sender: FDA-Public Use
  Company Number: None

PATIENT
  Age: 53 Year
  Sex: Female
  Weight: 87.09 kg

DRUGS (4)
  1. BENICAR [Suspect]
     Active Substance: OLMESARTAN MEDOXOMIL
     Indication: HYPERTENSION
     Dosage: 1 ONCE DAILY
     Route: 048
     Dates: start: 20150202, end: 20160201
  2. FUROSEMIDE. [Concomitant]
     Active Substance: FUROSEMIDE
  3. BENICAR [Concomitant]
     Active Substance: OLMESARTAN MEDOXOMIL
  4. AMOCCILIN [Concomitant]

REACTIONS (4)
  - Weight increased [None]
  - Peripheral swelling [None]
  - Abdominal distension [None]
  - Heart rate increased [None]

NARRATIVE: CASE EVENT DATE: 20160201
